FAERS Safety Report 9357746 (Version 1)
Quarter: 2013Q2

REPORT INFORMATION
  Report Type: Spontaneous
  Country: DE (occurrence: CA)
  Receive Date: 20130620
  Receipt Date: 20130620
  Transmission Date: 20140414
  Serious: Yes (Death)
  Sender: FDA-Public Use
  Company Number: CA-FRI-1000046003

PATIENT
  Sex: Female
  Weight: 72 kg

DRUGS (1)
  1. ROFLUMILAST [Suspect]
     Dates: end: 201303

REACTIONS (1)
  - Pneumonia [Fatal]
